APPROVED DRUG PRODUCT: TOBRAMYCIN
Active Ingredient: TOBRAMYCIN
Strength: 300MG/5ML
Dosage Form/Route: SOLUTION;INHALATION
Application: A205501 | Product #001 | TE Code: AN
Applicant: AMNEAL PHARMACEUTICALS OF NEW YORK LLC
Approved: Jul 13, 2015 | RLD: No | RS: No | Type: RX